FAERS Safety Report 22000474 (Version 1)
Quarter: 2023Q1

REPORT INFORMATION
  Report Type: Spontaneous
  Country: US (occurrence: US)
  Receive Date: 20230216
  Receipt Date: 20230216
  Transmission Date: 20230417
  Serious: No
  Sender: FDA-Public Use
  Company Number: US-PFIZER INC-202300060231

PATIENT
  Age: 41 Year
  Sex: Female
  Weight: 95.25 kg

DRUGS (1)
  1. NURTEC ODT [Suspect]
     Active Substance: RIMEGEPANT SULFATE
     Indication: Vertigo
     Dosage: 75 MG, ALTERNATE DAY

REACTIONS (2)
  - Dizziness [Unknown]
  - Off label use [Unknown]
